FAERS Safety Report 7411231-0 (Version None)
Quarter: 2011Q2

REPORT INFORMATION
  Report Type: 
  Country: None (occurrence: None)
  Receive Date: 20110405
  Receipt Date: 20110317
  Transmission Date: 20111010
  Serious: Yes (Death)
  Sender: FDA-Public Use
  Company Number: 2011P1005196

PATIENT
  Age: 33 Year
  Sex: Female

DRUGS (10)
  1. TRAZODONE (NO PREF. NAME) [Suspect]
     Dosage: PO
     Route: 048
  2. TRAZODONE (NO PREF. NAME) [Suspect]
     Dosage: PO
     Route: 048
  3. NORTRIPTYLINE (NO PREF. NAME) [Suspect]
     Dosage: PO
     Route: 048
  4. ACETAMINOPHEN/HYDROCODONE (NO PREF. NAME) [Suspect]
     Dosage: PO
     Route: 048
  5. OXYCONTIN [Suspect]
     Dosage: PO
     Route: 048
  6. ROSIGLITAZONE [Suspect]
     Dosage: PO
     Route: 048
  7. LISINOPRIL [Suspect]
     Dosage: PO
     Route: 048
  8. ARIPIPRAZOLE [Suspect]
     Dosage: PO
     Route: 048
  9. ROSUVASTATIN [Suspect]
     Dosage: PO
     Route: 048
  10. DICLOFENAC (NO PREF. NAME) [Suspect]
     Dosage: PO
     Route: 048

REACTIONS (2)
  - CARDIAC ARREST [None]
  - RESPIRATORY ARREST [None]
